FAERS Safety Report 26073462 (Version 1)
Quarter: 2025Q4

REPORT INFORMATION
  Report Type: Spontaneous
  Country: CN (occurrence: CN)
  Receive Date: 20251121
  Receipt Date: 20251121
  Transmission Date: 20260118
  Serious: Yes (Other)
  Sender: SANDOZ
  Company Number: CN-002147023-NVSC2025CN171947

PATIENT
  Age: 41 Year
  Sex: Male
  Weight: 62 kg

DRUGS (1)
  1. TOBRADEX [Suspect]
     Active Substance: DEXAMETHASONE\TOBRAMYCIN
     Indication: Conjunctivitis
     Dosage: 4 DROP, QID ( 1 DRP, QID)
     Route: 047
     Dates: start: 20230912, end: 20250912

REACTIONS (4)
  - Xerophthalmia [Unknown]
  - Intraocular pressure increased [Recovering/Resolving]
  - Ocular hypertension [Unknown]
  - Refraction disorder [Unknown]

NARRATIVE: CASE EVENT DATE: 20250912
